FAERS Safety Report 13429983 (Version 1)
Quarter: 2017Q2

REPORT INFORMATION
  Report Type: Other
  Country: US (occurrence: US)
  Receive Date: 20170412
  Receipt Date: 20170412
  Transmission Date: 20170830
  Serious: Yes (Other)
  Sender: FDA-Public Use
  Company Number: US-VELOXIS PHARMACEUTICALS-1065299

PATIENT

DRUGS (4)
  1. ENVARSUS XR [Suspect]
     Active Substance: TACROLIMUS
     Indication: RENAL TRANSPLANT
  2. PREDNISONE. [Suspect]
     Active Substance: PREDNISONE
  3. BASILIXIMAB [Suspect]
     Active Substance: BASILIXIMAB
  4. TENOFOVIR DISOPROXIL FUMARATE. [Suspect]
     Active Substance: TENOFOVIR DISOPROXIL FUMARATE

REACTIONS (4)
  - Urinary tract infection [Unknown]
  - Lymphopenia [Unknown]
  - Urinary tract obstruction [Unknown]
  - Hydronephrosis [Unknown]
